FAERS Safety Report 10201264 (Version 2)
Quarter: 2014Q2

REPORT INFORMATION
  Report Type: Spontaneous
  Country: BR (occurrence: BR)
  Receive Date: 20140528
  Receipt Date: 20140603
  Transmission Date: 20141212
  Serious: Yes (Other)
  Sender: FDA-Public Use
  Company Number: BR-SA-2014SA065638

PATIENT
  Age: 57 Year
  Sex: Male
  Weight: 57 kg

DRUGS (3)
  1. LANTUS SOLOSTAR [Suspect]
     Indication: TYPE 1 DIABETES MELLITUS
     Route: 058
     Dates: start: 200708
  2. SOLOSTAR [Concomitant]
     Indication: TYPE 1 DIABETES MELLITUS
  3. HUMALOG [Concomitant]
     Dates: start: 200708

REACTIONS (6)
  - Polyglandular autoimmune syndrome type II [Unknown]
  - Renal failure [Unknown]
  - Hypothyroidism [Unknown]
  - Weight decreased [Unknown]
  - Malaise [Unknown]
  - Vitamin D deficiency [Unknown]
